FAERS Safety Report 8139589 (Version 2)
Quarter: 2016Q2

REPORT INFORMATION
  Report Type: Spontaneous
  Country: DE (occurrence: DE)
  Receive Date: 20110916
  Receipt Date: 20160524
  Transmission Date: 20160815
  Serious: Yes (Other)
  Sender: FDA-Public Use
  Company Number: PHHY2011DE79824

PATIENT
  Age: 64 Year
  Sex: Female

DRUGS (1)
  1. PAMIDRONATE [Suspect]
     Active Substance: PAMIDRONATE DISODIUM
     Indication: PLASMA CELL MYELOMA
     Dosage: 90 MG, EVERY 4 WEEKS
     Route: 042

REACTIONS (5)
  - Osteonecrosis [Recovered/Resolved]
  - Otorrhoea [Recovered/Resolved]
  - Bone disorder [Recovered/Resolved]
  - Ulcer [Recovered/Resolved]
  - Aural polyp [Recovered/Resolved]
